FAERS Safety Report 4423410-5 (Version None)
Quarter: 2004Q3

REPORT INFORMATION
  Report Type: 
  Country: None (occurrence: None)
  Receive Date: 20040811
  Receipt Date: 20040430
  Transmission Date: 20050211
  Serious: Yes (Other)
  Sender: FDA-Public Use
  Company Number: PHNU2004DE01684

PATIENT
  Sex: Female
  Weight: 78 kg

DRUGS (1)
  1. ESTRADERM [Suspect]
     Indication: MENOPAUSAL SYMPTOMS
     Route: 062
     Dates: start: 19890101

REACTIONS (1)
  - BLISTER [None]
